FAERS Safety Report 7209528-2 (Version None)
Quarter: 2011Q1

REPORT INFORMATION
  Report Type: 
  Country: None (occurrence: None)
  Receive Date: 20110104
  Receipt Date: 20101222
  Transmission Date: 20110831
  Serious: Yes (Death)
  Sender: FDA-Public Use
  Company Number: TR-CELGENEUS-161-C5013-10092560

PATIENT
  Sex: Male

DRUGS (1)
  1. CC-5013 [Suspect]
     Indication: MYELOFIBROSIS
     Route: 048
     Dates: start: 20100824, end: 20100908

REACTIONS (2)
  - SEPSIS [None]
  - PULMONARY EMBOLISM [None]
